FAERS Safety Report 8107372-5 (Version None)
Quarter: 2012Q1

REPORT INFORMATION
  Report Type: 
  Country: None (occurrence: None)
  Receive Date: 20120202
  Receipt Date: 20120125
  Transmission Date: 20120608
  Serious: Yes (Hospitalization)
  Sender: FDA-Public Use
  Company Number: IE-BAXTER-2012BH002645

PATIENT
  Age: 78 Year
  Sex: Female
  Weight: 69 kg

DRUGS (8)
  1. STERILE WATER FOR INJECTION IN PLASTIC CONTAINER [Suspect]
     Indication: OSTEOMYELITIS
     Route: 042
     Dates: start: 20111220, end: 20120124
  2. SODIUM CHLORIDE 0.9% IN PLASTIC CONTAINER [Suspect]
     Indication: OSTEOMYELITIS
     Route: 042
     Dates: start: 20111220, end: 20120120
  3. FLUCLOXACILLIN [Suspect]
     Indication: OSTEOMYELITIS
     Route: 042
     Dates: start: 20111220, end: 20120124
  4. CIPROFLOXACIN HYDROCHLORIDE [Suspect]
     Indication: ANTIBIOTIC THERAPY
     Route: 042
     Dates: end: 20120124
  5. CAPTOPRIL [Concomitant]
     Indication: HYPERTENSION
     Route: 048
  6. LERCANIDIPINE [Concomitant]
     Indication: HYPERTENSION
     Route: 048
  7. PROMECORT [Concomitant]
     Indication: PRODUCT USED FOR UNKNOWN INDICATION
     Route: 048
  8. PRAVASTATIN [Concomitant]
     Indication: BLOOD CHOLESTEROL INCREASED
     Route: 048

REACTIONS (5)
  - OEDEMA PERIPHERAL [None]
  - DEVICE BREAKAGE [None]
  - SUBCLAVIAN VEIN THROMBOSIS [None]
  - LOCAL SWELLING [None]
  - VENA CAVA THROMBOSIS [None]
